FAERS Safety Report 19845851 (Version 1)
Quarter: 2021Q3

REPORT INFORMATION
  Report Type: Report from Study
  Country: FR (occurrence: FR)
  Receive Date: 20210916
  Receipt Date: 20210916
  Transmission Date: 20211014
  Serious: Yes (Other)
  Sender: FDA-Public Use
  Company Number: FR-GILEAD-2021-0548787

PATIENT
  Age: 51 Year
  Sex: Female

DRUGS (2)
  1. SACITUZUMAB GOVITECAN. [Suspect]
     Active Substance: SACITUZUMAB GOVITECAN
     Indication: METASTASES TO BONE
  2. SACITUZUMAB GOVITECAN. [Suspect]
     Active Substance: SACITUZUMAB GOVITECAN
     Indication: METASTASES TO LUNG
     Dosage: 720 MG
     Route: 042
     Dates: start: 20210319, end: 20210719

REACTIONS (1)
  - Disease progression [Unknown]
